FAERS Safety Report 4453836-5 (Version None)
Quarter: 2004Q3

REPORT INFORMATION
  Report Type: 
  Country: None (occurrence: None)
  Receive Date: 20040920
  Receipt Date: 20040910
  Transmission Date: 20050211
  Serious: Yes (Hospitalization)
  Sender: FDA-Public Use
  Company Number: HU-ROCHE-380139

PATIENT
  Age: 48 Year
  Sex: Female

DRUGS (1)
  1. ROACCUTAN [Suspect]
     Indication: ROSACEA
     Dosage: DOSAGE REGIMEN REPORTED AS: 3X1.
     Route: 065
     Dates: start: 20040515, end: 20040827

REACTIONS (1)
  - CORNEAL ULCER [None]
